FAERS Safety Report 7030650-8 (Version None)
Quarter: 2010Q4

REPORT INFORMATION
  Report Type: 
  Country: None (occurrence: None)
  Receive Date: 20101006
  Receipt Date: 20100928
  Transmission Date: 20110411
  Serious: Yes (Hospitalization)
  Sender: FDA-Public Use
  Company Number: HU-ROCHE-729985

PATIENT
  Sex: Female
  Weight: 81.3 kg

DRUGS (12)
  1. TOCILIZUMAB [Suspect]
     Indication: RHEUMATOID ARTHRITIS
     Dosage: FORM: VIAL 10 ML
     Route: 042
     Dates: start: 20050713
  2. BLINDED TOCILIZUMAB [Suspect]
     Indication: RHEUMATOID ARTHRITIS
     Dosage: DOSE BLINDED; PATIENT WAS PREVIOUSLY ENROLLED IN THE BLINDED STUDY WA17822
     Route: 042
  3. METHOTREXATE [Concomitant]
     Dates: start: 20081222
  4. FOLIC ACID [Concomitant]
     Dates: start: 20010701
  5. QUINAPRIL [Concomitant]
     Dates: start: 20080710
  6. BISOPROLOL [Concomitant]
     Dates: start: 20080710
  7. HYDROCHLORTHIAZID [Concomitant]
     Dates: start: 20080710
  8. FUROSEMIDE [Concomitant]
     Dates: start: 20090120
  9. OMEPRAZOLE [Concomitant]
     Dates: start: 20080203
  10. ALENDRONIC ACID [Concomitant]
     Dates: start: 20030101
  11. COLECALCIFEROL [Concomitant]
     Dates: start: 20080105
  12. CALCIUM CITRATE [Concomitant]
     Dates: start: 20080105

REACTIONS (1)
  - SKIN PAPILLOMA [None]
